FAERS Safety Report 11580447 (Version 1)
Quarter: 2015Q3

REPORT INFORMATION
  Report Type: Spontaneous
  Country: US (occurrence: US)
  Receive Date: 20150930
  Receipt Date: 20150930
  Transmission Date: 20151125
  Serious: Yes (Life-Threatening, Hospitalization, Other)
  Sender: FDA-Public Use
  Company Number: US-EDGEMONT-2015EDG00035

PATIENT
  Age: 15 Month
  Sex: Female

DRUGS (1)
  1. BUPROPION. [Suspect]
     Active Substance: BUPROPION
     Route: 048

REACTIONS (10)
  - Status epilepticus [Recovered/Resolved]
  - Metabolic acidosis [Recovered/Resolved]
  - Cardio-respiratory arrest [Recovered/Resolved]
  - Paresis [Unknown]
  - Hypoxic-ischaemic encephalopathy [Recovered/Resolved with Sequelae]
  - Hepatic enzyme increased [Unknown]
  - Blindness cortical [Unknown]
  - Partial seizures [Recovered/Resolved with Sequelae]
  - Accidental exposure to product by child [Recovered/Resolved]
  - Accidental overdose [Recovered/Resolved]
